FAERS Safety Report 6204361-2 (Version None)
Quarter: 2009Q2

REPORT INFORMATION
  Report Type: 
  Country: None (occurrence: None)
  Receive Date: 20090527
  Receipt Date: 20090515
  Transmission Date: 20091009
  Serious: No
  Sender: FDA-Public Use
  Company Number: HK-ELI_LILLY_AND_COMPANY-HK200905003331

PATIENT
  Sex: Male

DRUGS (1)
  1. CIALIS [Suspect]
     Dosage: 5 MG, AS NEEDED (1/4 TABLET OF 20MG)
     Route: 048
     Dates: start: 20090201, end: 20090101

REACTIONS (2)
  - OCULAR HYPERAEMIA [None]
  - RETINAL VASCULAR DISORDER [None]
